FAERS Safety Report 21595465 (Version 3)
Quarter: 2024Q1

REPORT INFORMATION
  Report Type: Report from Study
  Country: CO (occurrence: CO)
  Receive Date: 20221115
  Receipt Date: 20240221
  Transmission Date: 20240409
  Serious: Yes (Hospitalization)
  Sender: FDA-Public Use
  Company Number: CO-BIOGEN-2020BI00885362

PATIENT
  Sex: Female
  Weight: 49 kg

DRUGS (13)
  1. DALFAMPRIDINE [Suspect]
     Active Substance: DALFAMPRIDINE
     Indication: Gait disturbance
     Route: 050
     Dates: start: 20140917
  2. DALFAMPRIDINE [Suspect]
     Active Substance: DALFAMPRIDINE
     Dosage: 1 ORAL TABLET OF 10 MG OF FAMPYRA (FAMPRIDINE) EVERY 12 HOURS
     Route: 050
     Dates: start: 201409
  3. TECFIDERA [Suspect]
     Active Substance: DIMETHYL FUMARATE
     Indication: Multiple sclerosis
     Route: 050
     Dates: start: 2018, end: 202004
  4. TECFIDERA [Suspect]
     Active Substance: DIMETHYL FUMARATE
     Route: 050
     Dates: start: 20180802, end: 20210420
  5. TECFIDERA [Suspect]
     Active Substance: DIMETHYL FUMARATE
     Route: 050
  6. TECFIDERA [Suspect]
     Active Substance: DIMETHYL FUMARATE
     Dosage: 1 ORAL CAPSULE OF 240 MG OF TECFIDERA (DIMETHYL FUMARATE) TWICE A DAY
     Route: 050
     Dates: start: 201808, end: 20230414
  7. TECFIDERA [Suspect]
     Active Substance: DIMETHYL FUMARATE
     Dosage: 1 ORAL CAPSULE OF 240 MG PER DAY
     Route: 050
     Dates: start: 20230414, end: 20230416
  8. TECFIDERA [Suspect]
     Active Substance: DIMETHYL FUMARATE
     Dosage: 1 ORAL CAPSULE OF 240 MG OF TECFIDERA (DIMETHYL FUMARATE) TWICE A DAY
     Route: 050
     Dates: start: 20230417
  9. YARDIX [Concomitant]
     Indication: Multiple sclerosis
     Route: 050
     Dates: start: 202004
  10. LEVOTHYROXINE [Concomitant]
     Active Substance: LEVOTHYROXINE\LEVOTHYROXINE SODIUM
     Indication: Hypothyroidism
     Dosage: ON TUESDAY, THURSDAY, SATURDAY AND SUNDAY
     Route: 050
     Dates: start: 1995
  11. LEVOTHYROXINE [Concomitant]
     Active Substance: LEVOTHYROXINE\LEVOTHYROXINE SODIUM
     Route: 050
     Dates: start: 2017
  12. LEVOTHYROXINE [Concomitant]
     Active Substance: LEVOTHYROXINE\LEVOTHYROXINE SODIUM
     Route: 050
     Dates: start: 2002
  13. THIAMINE [Concomitant]
     Active Substance: THIAMINE
     Indication: Nutritional supplementation
     Route: 050
     Dates: start: 202103

REACTIONS (9)
  - Musculoskeletal disorder [Recovered/Resolved]
  - Pyrexia [Recovered/Resolved]
  - Hypertension [Unknown]
  - Dysphonia [Not Recovered/Not Resolved]
  - Weight decreased [Not Recovered/Not Resolved]
  - Erythema [Recovered/Resolved]
  - Hypertension [Recovered/Resolved]
  - Anxiety [Not Recovered/Not Resolved]
  - Hypersensitivity [Unknown]

NARRATIVE: CASE EVENT DATE: 20150101
